FAERS Safety Report 9752969 (Version 1)
Quarter: 2013Q4

REPORT INFORMATION
  Report Type: Spontaneous
  Country: US (occurrence: US)
  Receive Date: 20131213
  Receipt Date: 20131213
  Transmission Date: 20140711
  Serious: Yes (Other)
  Sender: FDA-Public Use
  Company Number: US-MALLINCKRODT-T201305069

PATIENT
  Age: 45 Year
  Sex: Male

DRUGS (4)
  1. METHADOSE [Suspect]
     Indication: PAIN
     Dosage: DOSE }90MG DAILY DOSE
     Route: 048
  2. METHADOSE [Suspect]
     Dosage: 30 MG, TID
     Route: 048
  3. DULOXETINE [Suspect]
     Indication: PRODUCT USED FOR UNKNOWN INDICATION
     Dosage: 60 MG, QD
     Route: 065
  4. DESIPRAMINE [Concomitant]
     Indication: INSOMNIA
     Dosage: 10 MG, QD AT BEDTIME

REACTIONS (6)
  - Serotonin syndrome [Recovered/Resolved]
  - Nephrolithiasis [Unknown]
  - Fatigue [Recovered/Resolved]
  - Muscular weakness [Recovered/Resolved]
  - Insomnia [Recovered/Resolved]
  - Intentional drug misuse [Recovered/Resolved]
